FAERS Safety Report 8917526 (Version 1)
Quarter: 2012Q4

REPORT INFORMATION
  Report Type: 
  Country: US (occurrence: US)
  Receive Date: 20121120
  Receipt Date: 20121120
  Transmission Date: 20130627
  Serious: No
  Sender: FDA-Public Use
  Company Number: US-B.I. PHARMACEUTICALS,INC./RIDGEFIELD-2012-BI-00624BP

PATIENT
  Age: 77 None
  Sex: Female
  Weight: 63.5 kg

DRUGS (6)
  1. PRADAXA [Suspect]
     Indication: ATRIAL FIBRILLATION
  2. XARELTO [Suspect]
     Indication: ATRIAL FIBRILLATION
     Dosage: 20 mg
     Route: 048
     Dates: start: 20121017
  3. XARELTO [Suspect]
     Indication: CEREBROVASCULAR ACCIDENT PROPHYLAXIS
  4. METOPROLOL [Concomitant]
     Dosage: 25 mg
     Route: 048
  5. FLECAINIDE [Concomitant]
     Indication: ATRIAL FIBRILLATION
     Dosage: 75 mg
     Route: 048
  6. ACETYLSALICYLIC ACID [Concomitant]
     Indication: THROMBOSIS PROPHYLAXIS
     Dosage: 75 mg
     Route: 048

REACTIONS (5)
  - Blood urine present [Recovered/Resolved]
  - Vomiting [Recovered/Resolved]
  - White blood cells urine [Not Recovered/Not Resolved]
  - Blood urine present [Not Recovered/Not Resolved]
  - Malaise [Recovered/Resolved]
